FAERS Safety Report 11346779 (Version 1)
Quarter: 2015Q3

REPORT INFORMATION
  Report Type: Spontaneous
  Country: US (occurrence: US)
  Receive Date: 20150803
  Receipt Date: 20150803
  Transmission Date: 20151125
  Serious: No
  Sender: FDA-Public Use
  Company Number: US-ELI_LILLY_AND_COMPANY-US201012002227

PATIENT
  Age: 70 Year
  Sex: Male

DRUGS (5)
  1. CELEXA [Concomitant]
     Active Substance: CITALOPRAM HYDROBROMIDE
     Dosage: 40 MG, UNK
  2. SEROQUEL [Concomitant]
     Active Substance: QUETIAPINE FUMARATE
     Dosage: 1000 MG, UNK
  3. DILANTIN [Concomitant]
     Active Substance: PHENYTOIN
  4. GABAPENTIN. [Concomitant]
     Active Substance: GABAPENTIN
  5. ZYPREXA [Suspect]
     Active Substance: OLANZAPINE
     Indication: SCHIZOPHRENIA
     Dosage: 30 MG, UNK

REACTIONS (3)
  - Balance disorder [Unknown]
  - Dystonia [Unknown]
  - Overdose [Recovered/Resolved]
